FAERS Safety Report 6370851-5 (Version None)
Quarter: 2009Q3

REPORT INFORMATION
  Report Type: 
  Country: None (occurrence: None)
  Receive Date: 20090923
  Receipt Date: 20070518
  Transmission Date: 20100115
  Serious: No
  Sender: FDA-Public Use
  Company Number: US-ASTRAZENECA-2006UW24059

PATIENT
  Age: 15825 Day
  Sex: Male
  Weight: 94.3 kg

DRUGS (7)
  1. SEROQUEL [Suspect]
     Indication: SCHIZOPHRENIA
     Dosage: 100-200 MG
     Route: 048
     Dates: start: 20010101
  2. SEROQUEL [Suspect]
     Indication: BIPOLAR DISORDER
     Dosage: 100-200 MG
     Route: 048
     Dates: start: 20010101
  3. SEROQUEL [Suspect]
     Route: 048
     Dates: start: 20020101
  4. SEROQUEL [Suspect]
     Route: 048
     Dates: start: 20020101
  5. RISPERDAL [Concomitant]
     Dates: start: 20040101
  6. GEODON [Concomitant]
     Dates: start: 20000101
  7. ZYPREXA [Concomitant]
     Dates: start: 19940101

REACTIONS (3)
  - DIABETES MELLITUS [None]
  - OBESITY [None]
  - TYPE 2 DIABETES MELLITUS [None]
